FAERS Safety Report 6644472-0 (Version None)
Quarter: 2010Q1

REPORT INFORMATION
  Report Type: 
  Country: None (occurrence: None)
  Receive Date: 20100322
  Receipt Date: 20100312
  Transmission Date: 20100710
  Serious: Yes (Other)
  Sender: FDA-Public Use
  Company Number: US-ROCHE-691727

PATIENT
  Age: 54 Year
  Sex: Female

DRUGS (3)
  1. BEVACIZUMAB [Suspect]
     Indication: OVARIAN CANCER
     Route: 065
  2. PACLITAXEL [Suspect]
     Indication: OVARIAN CANCER
     Route: 065
  3. CARBOPLATIN [Suspect]
     Indication: OVARIAN CANCER
     Route: 065

REACTIONS (2)
  - GASTROINTESTINAL PERFORATION [None]
  - PNEUMOPERITONEUM [None]
